FAERS Safety Report 16715482 (Version 4)
Quarter: 2019Q3

REPORT INFORMATION
  Report Type: Spontaneous
  Country: FR (occurrence: FR)
  Receive Date: 20190819
  Receipt Date: 20190828
  Transmission Date: 20191005
  Serious: Yes (Hospitalization, Other)
  Sender: FDA-Public Use
  Company Number: FR-PFIZER INC-2019350720

PATIENT
  Age: 86 Year
  Sex: Female

DRUGS (8)
  1. COSIMPREL [Suspect]
     Active Substance: BISOPROLOL FUMARATE\PERINDOPRIL ARGININE
     Dosage: 1 DOSAGE FORM, ONE DAY
     Route: 048
     Dates: start: 201801, end: 20190710
  2. ATORVASTATIN CALCIUM. [Suspect]
     Active Substance: ATORVASTATIN CALCIUM
     Dosage: 1 DOSAGE FORM, ONE DAY
     Route: 048
     Dates: end: 20190710
  3. ELIQUIS [Suspect]
     Active Substance: APIXABAN
     Dosage: 2 DOSAGE FORM, ONE DAY INTERVAL
     Route: 048
     Dates: start: 201801, end: 20190709
  4. FUROSEMIDE. [Suspect]
     Active Substance: FUROSEMIDE
     Dosage: 1 DOSAGE FORM, ONE DAY
     Route: 048
     Dates: start: 20190310, end: 20190710
  5. KARDEGIC [Suspect]
     Active Substance: ASPIRIN DL-LYSINE
     Dosage: 75 MILLIGRAM, QD
     Route: 048
     Dates: start: 20190707, end: 20190709
  6. PANTOPRAZOLE [Suspect]
     Active Substance: PANTOPRAZOLE
     Dosage: 1 DOSAGE FORM, ONE DAY
     Route: 048
     Dates: end: 20190710
  7. SPIRONOLACTONE. [Suspect]
     Active Substance: SPIRONOLACTONE
     Dosage: 0.5 DOSAGE FORM, ONE DAY
     Route: 048
     Dates: start: 201801, end: 20190710
  8. DIFFU K [Suspect]
     Active Substance: POTASSIUM CHLORIDE
     Dosage: 6 DF, 1X/DAY
     Route: 048
     Dates: start: 20190708, end: 20190710

REACTIONS (4)
  - Hepatitis fulminant [Recovering/Resolving]
  - Haematemesis [Recovered/Resolved]
  - Melaena [Recovered/Resolved]
  - Acute kidney injury [Recovering/Resolving]

NARRATIVE: CASE EVENT DATE: 20190709
